FAERS Safety Report 18096156 (Version 1)
Quarter: 2020Q3

REPORT INFORMATION
  Report Type: Spontaneous
  Country: US (occurrence: US)
  Receive Date: 20200731
  Receipt Date: 20200731
  Transmission Date: 20201103
  Serious: No
  Sender: FDA-Public Use
  Company Number: US-TAKEDA-2020TUS032773

PATIENT
  Sex: Female
  Weight: 56 kg

DRUGS (1)
  1. TRINTELLIX [Suspect]
     Active Substance: VORTIOXETINE HYDROBROMIDE
     Indication: MAJOR DEPRESSION
     Dosage: 20 MILLIGRAM
     Route: 065

REACTIONS (5)
  - Fatigue [Unknown]
  - Anger [Unknown]
  - Aggression [Unknown]
  - Agitation [Unknown]
  - Middle insomnia [Unknown]
